FAERS Safety Report 25958418 (Version 1)
Quarter: 2025Q4

REPORT INFORMATION
  Report Type: Spontaneous
  Country: US (occurrence: US)
  Receive Date: 20251024
  Receipt Date: 20251024
  Transmission Date: 20260117
  Serious: No
  Sender: INSUD PHARMA
  Company Number: US-INSUD PHARMA-2510US08432

PATIENT

DRUGS (2)
  1. BETAMETHASONE [Suspect]
     Active Substance: BETAMETHASONE
     Indication: Rash
     Dosage: UNK
     Route: 061
     Dates: start: 20251009
  2. BETAMETHASONE [Suspect]
     Active Substance: BETAMETHASONE
     Indication: Eczema
     Dosage: UNK
     Route: 061
     Dates: start: 20250805, end: 20250807

REACTIONS (3)
  - Device delivery system issue [Unknown]
  - Wrong technique in product usage process [Unknown]
  - Product prescribing issue [Unknown]

NARRATIVE: CASE EVENT DATE: 20250805
